FAERS Safety Report 5940711-X (Version None)
Quarter: 2008Q4

REPORT INFORMATION
  Report Type: 
  Country: None (occurrence: None)
  Receive Date: 20081103
  Receipt Date: 20081103
  Transmission Date: 20090506
  Serious: Yes (Other)
  Sender: FDA-Public Use
  Company Number: None

PATIENT
  Age: 86 Year
  Sex: Male
  Weight: 58.9676 kg

DRUGS (1)
  1. XIBROM [Suspect]
     Indication: MACULAR DEGENERATION
     Dosage: INSTILL 1 DROP IN BOTH EYES TWICE A DAY
     Dates: start: 20080731

REACTIONS (3)
  - CONDITION AGGRAVATED [None]
  - IMPAIRED DRIVING ABILITY [None]
  - MACULAR DEGENERATION [None]
